FAERS Safety Report 4620046-8 (Version None)
Quarter: 2005Q1

REPORT INFORMATION
  Report Type: 
  Country: None (occurrence: None)
  Receive Date: 20050322
  Receipt Date: 20050322
  Transmission Date: 20050727
  Serious: Yes (Hospitalization)
  Sender: FDA-Public Use
  Company Number: None

PATIENT
  Sex: Female

DRUGS (3)
  1. LACTATED RINGER'S [Suspect]
     Dosage: NOW   ONCE   INTRAVENOU
     Route: 042
     Dates: start: 20050320, end: 20050320
  2. LACTATED RINGER'S [Suspect]
     Dates: start: 20050320, end: 20050320
  3. LACTATED RINGER'S [Suspect]
     Dates: start: 20050320, end: 20050320

REACTIONS (2)
  - ANAPHYLACTOID REACTION [None]
  - DRUG HYPERSENSITIVITY [None]
